FAERS Safety Report 25427271 (Version 5)
Quarter: 2025Q4

REPORT INFORMATION
  Report Type: Report from Study
  Country: RU (occurrence: RU)
  Receive Date: 20250612
  Receipt Date: 20251217
  Transmission Date: 20260117
  Serious: Yes (Hospitalization)
  Sender: TAKEDA
  Company Number: RU-TAKEDA-2024TUS072315

PATIENT
  Age: 12 Year
  Sex: Male

DRUGS (3)
  1. IDURSULFASE [Suspect]
     Active Substance: IDURSULFASE
     Indication: Mucopolysaccharidosis II
     Dosage: UNK
  2. IDURSULFASE [Suspect]
     Active Substance: IDURSULFASE
     Dosage: 18 MILLIGRAM, 1/WEEK
     Dates: start: 20190116
  3. IDURSULFASE [Suspect]
     Active Substance: IDURSULFASE
     Dosage: UNK

REACTIONS (7)
  - Body temperature increased [Recovered/Resolved]
  - Asthenia [Not Recovered/Not Resolved]
  - Urine flow decreased [Unknown]
  - Sputum retention [Recovered/Resolved]
  - Viral infection [Unknown]
  - Poor venous access [Not Recovered/Not Resolved]
  - Respiratory tract infection [Recovering/Resolving]

NARRATIVE: CASE EVENT DATE: 20250705
